FAERS Safety Report 7757595-X (Version None)
Quarter: 2011Q3

REPORT INFORMATION
  Report Type: 
  Country: None (occurrence: None)
  Receive Date: 20110916
  Receipt Date: 20110906
  Transmission Date: 20111222
  Serious: Yes (Hospitalization)
  Sender: FDA-Public Use
  Company Number: GB-ELI_LILLY_AND_COMPANY-GB201109001547

PATIENT

DRUGS (1)
  1. HUMALOG [Suspect]
     Dosage: UNK
     Route: 058

REACTIONS (2)
  - HYPERGLYCAEMIA [None]
  - DRUG INEFFECTIVE [None]
